FAERS Safety Report 7068481-5 (Version None)
Quarter: 2010Q4

REPORT INFORMATION
  Report Type: 
  Country: None (occurrence: None)
  Receive Date: 20101028
  Receipt Date: 20100427
  Transmission Date: 20110411
  Serious: Yes (Other)
  Sender: FDA-Public Use
  Company Number: DE-EISAI INC.-E2080-00289-CLI-DE

PATIENT
  Sex: Male
  Weight: 72.8 kg

DRUGS (2)
  1. INOVELON [Suspect]
     Indication: LENNOX-GASTAUT SYNDROME
     Route: 048
     Dates: start: 20091129
  2. VALPROAT [Concomitant]
     Route: 048
     Dates: start: 20100130

REACTIONS (1)
  - ATONIC SEIZURES [None]
